FAERS Safety Report 24831064 (Version 1)
Quarter: 2025Q1

REPORT INFORMATION
  Report Type: Spontaneous
  Country: US (occurrence: None)
  Receive Date: 20250110
  Receipt Date: 20250110
  Transmission Date: 20250409
  Serious: No
  Sender: FDA-CTU
  Company Number: None

PATIENT
  Age: 42 Year
  Sex: Female
  Weight: 69.75 kg

DRUGS (1)
  1. JEUVEAU [Suspect]
     Active Substance: PRABOTULINUMTOXINA-XVFS
     Dates: start: 20241231, end: 20241231

REACTIONS (2)
  - Anxiety [None]
  - Dyspnoea [None]

NARRATIVE: CASE EVENT DATE: 20250102
